FAERS Safety Report 12998299 (Version 1)
Quarter: 2016Q4

REPORT INFORMATION
  Report Type: Spontaneous
  Country: US (occurrence: US)
  Receive Date: 20161202
  Receipt Date: 20161202
  Transmission Date: 20170207
  Serious: Yes (Death, Hospitalization)
  Sender: FDA-Public Use
  Company Number: None

PATIENT
  Age: 4 Year
  Sex: Female
  Weight: 29 kg

DRUGS (4)
  1. MERCAPTOPURINE. [Suspect]
     Active Substance: MERCAPTOPURINE
  2. VINCRISTINE SULFATE. [Suspect]
     Active Substance: VINCRISTINE SULFATE
     Dates: end: 20161011
  3. DEXAMETHASONE. [Suspect]
     Active Substance: DEXAMETHASONE
     Dates: end: 20161015
  4. METHOTREXATE. [Suspect]
     Active Substance: METHOTREXATE
     Dates: end: 20161023

REACTIONS (16)
  - Otitis media acute [None]
  - Pseudomonas test positive [None]
  - Acute hepatic failure [None]
  - Drug level decreased [None]
  - Brain oedema [None]
  - Histiocytosis haematophagic [None]
  - Pancytopenia [None]
  - Hepatic steatosis [None]
  - Hyperammonaemia [None]
  - Disseminated intravascular coagulation [None]
  - Brain herniation [None]
  - Hypotension [None]
  - Organ failure [None]
  - White blood cell count decreased [None]
  - Streptococcus test positive [None]
  - Serum ferritin increased [None]

NARRATIVE: CASE EVENT DATE: 20161024
